FAERS Safety Report 12072908 (Version 2)
Quarter: 2016Q1

REPORT INFORMATION
  Report Type: Spontaneous
  Country: US (occurrence: US)
  Receive Date: 20160212
  Receipt Date: 20160324
  Transmission Date: 20160526
  Serious: Yes (Hospitalization)
  Sender: FDA-Public Use
  Company Number: US-SHIONOGI, INC-2016000141

PATIENT
  Age: 73 Year
  Sex: Male

DRUGS (3)
  1. REGRANEX [Suspect]
     Active Substance: BECAPLERMIN
     Indication: PAIN IN EXTREMITY
     Dosage: UNK
     Route: 065
  2. REGRANEX [Suspect]
     Active Substance: BECAPLERMIN
     Indication: ERYTHEMA
  3. REGRANEX [Suspect]
     Active Substance: BECAPLERMIN
     Indication: PERIPHERAL SWELLING

REACTIONS (4)
  - Cellulitis [Unknown]
  - Off label use [Unknown]
  - Drug ineffective for unapproved indication [Unknown]
  - Osteomyelitis [Unknown]

NARRATIVE: CASE EVENT DATE: 20151028
